FAERS Safety Report 8265961-1 (Version None)
Quarter: 2012Q2

REPORT INFORMATION
  Report Type: 
  Country: None (occurrence: None)
  Receive Date: 20120404
  Receipt Date: 20120323
  Transmission Date: 20120825
  Serious: Yes (Other)
  Sender: FDA-Public Use
  Company Number: 1203-152

PATIENT
  Age: 69 Year
  Sex: Female

DRUGS (2)
  1. EYLEA [Suspect]
     Dosage: INTRAVITREAL
     Dates: start: 20120110
  2. THYROID TAB [Concomitant]

REACTIONS (2)
  - NEOPLASM MALIGNANT [None]
  - SERUM SEROTONIN INCREASED [None]
